FAERS Safety Report 10459027 (Version 1)
Quarter: 2014Q3

REPORT INFORMATION
  Report Type: Spontaneous
  Country: US (occurrence: None)
  Receive Date: 20140916
  Receipt Date: 20140916
  Transmission Date: 20150326
  Serious: Yes (Other)
  Sender: FDA-Public Use
  Company Number: None

PATIENT
  Age: 10 Year
  Sex: Male

DRUGS (2)
  1. LAMICTAL [Suspect]
     Active Substance: LAMOTRIGINE
     Indication: CONVULSION
     Dosage: 3 QD PO
     Route: 048
     Dates: start: 20090303
  2. LAMICTAL [Suspect]
     Active Substance: LAMOTRIGINE
     Indication: CEREBRAL PALSY
     Dosage: 3 QD PO
     Route: 048
     Dates: start: 20090303

REACTIONS (2)
  - Convulsion [None]
  - Toxicity to various agents [None]

NARRATIVE: CASE EVENT DATE: 20090303
